FAERS Safety Report 5195664-1 (Version None)
Quarter: 2007Q1

REPORT INFORMATION
  Report Type: 
  Country: None (occurrence: None)
  Receive Date: 20070102
  Receipt Date: 20061220
  Transmission Date: 20070707
  Serious: Yes (Hospitalization)
  Sender: FDA-Public Use
  Company Number: PHHO2006GB21750

PATIENT
  Sex: Female

DRUGS (2)
  1. DINOPROSTONE [Suspect]
     Indication: LABOUR INDUCTION
     Dosage: 6 MG/DAY
     Route: 067
     Dates: start: 20061218, end: 20061218
  2. SYNTOCINON [Suspect]
     Indication: LABOUR INDUCTION
     Route: 042
     Dates: start: 20061219, end: 20061220

REACTIONS (2)
  - CAESAREAN SECTION [None]
  - DRUG EXPOSURE DURING PREGNANCY [None]
